FAERS Safety Report 12600018 (Version 1)
Quarter: 2016Q3

REPORT INFORMATION
  Report Type: Spontaneous
  Country: US (occurrence: US)
  Receive Date: 20160727
  Receipt Date: 20160727
  Transmission Date: 20161109
  Serious: No
  Sender: FDA-Public Use
  Company Number: US-AKRIMAX-TIR-2016-0563

PATIENT
  Sex: Female
  Weight: 43.13 kg

DRUGS (6)
  1. TIROSINT [Suspect]
     Active Substance: LEVOTHYROXINE SODIUM
     Indication: HYPOTHYROIDISM
     Dosage: ONCE DAILY
     Route: 048
     Dates: start: 201604
  2. TIROSINT [Suspect]
     Active Substance: LEVOTHYROXINE SODIUM
     Indication: AUTOIMMUNE THYROIDITIS
     Dosage: ONE 25MCG CAPSULE DAILY FOR TWO?CONSECUTIVE DAYS AND ON THE 3RD DAY TAKES ONE 50MCG CAPSULE, REPEATS
     Route: 048
     Dates: start: 2016
  3. TIROSINT [Suspect]
     Active Substance: LEVOTHYROXINE SODIUM
     Indication: AUTOIMMUNE THYROIDITIS
     Dosage: ONE 25MCG CAPSULE DAILY FOR TWO?CONSECUTIVE DAYS AND ON THE 3RD DAY TAKES ONE 50MCG CAPSULE, REPEATS
     Route: 048
     Dates: start: 2016
  4. TIROSINT [Suspect]
     Active Substance: LEVOTHYROXINE SODIUM
     Dosage: 50MCG FOR FIVE DAYS ON AND THEN OFF TWO DAYS
     Route: 048
     Dates: start: 2016
  5. TIROSINT [Suspect]
     Active Substance: LEVOTHYROXINE SODIUM
     Dosage: 50MCG THREE DAYS ON, THEN OFF A DAY
     Route: 048
     Dates: start: 2016
  6. TIROSINT [Suspect]
     Active Substance: LEVOTHYROXINE SODIUM
     Indication: HYPOTHYROIDISM
     Dosage: ONCE DAILY
     Route: 048
     Dates: start: 201604

REACTIONS (15)
  - Palpitations [Unknown]
  - Diarrhoea [Recovered/Resolved]
  - Drug level above therapeutic [Recovered/Resolved]
  - Pain [Recovered/Resolved]
  - Nausea [Unknown]
  - Irritability [Recovered/Resolved]
  - Chest discomfort [Not Recovered/Not Resolved]
  - Drug level below therapeutic [Recovered/Resolved]
  - Dizziness [Not Recovered/Not Resolved]
  - Dehydration [Unknown]
  - Insomnia [Not Recovered/Not Resolved]
  - Back pain [Unknown]
  - Muscle spasms [Unknown]
  - Bronchitis [Not Recovered/Not Resolved]
  - Pneumonia [Recovered/Resolved]

NARRATIVE: CASE EVENT DATE: 2016
